FAERS Safety Report 22294172 (Version 1)
Quarter: 2023Q2

REPORT INFORMATION
  Report Type: Spontaneous
  Country: None (occurrence: GB)
  Receive Date: 20230508
  Receipt Date: 20230508
  Transmission Date: 20230721
  Serious: Yes (Other)
  Sender: FDA-Public Use
  Company Number: GB-Canton Laboratories, LLC-2141214

PATIENT
  Sex: Male

DRUGS (8)
  1. NAPROSYN [Suspect]
     Active Substance: NAPROXEN
     Dates: end: 20180207
  2. AMITRIPTYLINE HYDROCHLORIDE [Concomitant]
     Active Substance: AMITRIPTYLINE HYDROCHLORIDE
  3. BENDROFLUMETHIAZIDE [Concomitant]
     Active Substance: BENDROFLUMETHIAZIDE
  4. ESTRIOL [Concomitant]
     Active Substance: ESTRIOL
  5. FOSFOMYCIN [Concomitant]
     Active Substance: FOSFOMYCIN
  6. LEVOTHYROXINE [Concomitant]
     Active Substance: LEVOTHYROXINE
  7. LOSARTAN [Concomitant]
     Active Substance: LOSARTAN
  8. OMEPRAZOLE [Concomitant]
     Active Substance: OMEPRAZOLE

REACTIONS (64)
  - Diarrhoea [None]
  - Malaise [None]
  - Abdominal discomfort [None]
  - Headache [None]
  - Nausea [None]
  - Hallucination [None]
  - Angioedema [None]
  - COVID-19 [None]
  - Dizziness [None]
  - Tinnitus [None]
  - Arthralgia [None]
  - Pain of skin [None]
  - Pain of skin [None]
  - Peripheral swelling [None]
  - Disturbance in attention [None]
  - Cognitive disorder [None]
  - Memory impairment [None]
  - Blindness [None]
  - Diplopia [None]
  - Vasculitis [None]
  - Carotid artery occlusion [None]
  - Transient ischaemic attack [None]
  - Pruritus genital [None]
  - Sleep terror [None]
  - Fatigue [None]
  - Vomiting [None]
  - Ventricular tachycardia [None]
  - Pericarditis [None]
  - Cardiospasm [None]
  - Dyspnoea [None]
  - Atrial tachycardia [None]
  - Anxiety [None]
  - Muscular weakness [None]
  - Feeling abnormal [None]
  - Insomnia [None]
  - Heart rate increased [None]
  - Muscle twitching [None]
  - Abdominal pain upper [None]
  - Dehydration [None]
  - Hyperhidrosis [None]
  - Rash papular [None]
  - Lip swelling [None]
  - Pruritus [None]
  - Palmoplantar keratoderma [None]
  - Dry skin [None]
  - Myocardial infarction [None]
  - Chest pain [None]
  - Palpitations [None]
  - Tachycardia [None]
  - Subarachnoid haemorrhage [None]
  - Pain [None]
  - Anosmia [None]
  - Eye pruritus [None]
  - Facial pain [None]
  - Back pain [None]
  - Nausea [None]
  - Blood glucose increased [None]
  - Amnesia [None]
  - Alopecia [None]
  - Pyrexia [None]
  - Tension headache [None]
  - Migraine [None]
  - Intentional product use issue [None]
  - Intentional product misuse [None]

NARRATIVE: CASE EVENT DATE: 20210501
